FAERS Safety Report 17263131 (Version 1)
Quarter: 2019Q4

REPORT INFORMATION
  Report Type: Spontaneous
  Country: US (occurrence: US)
  Receive Date: 20191218
  Receipt Date: 20191218
  Transmission Date: 20200122
  Serious: Yes (Disabling, Other)
  Sender: FDA-Public Use
  Company Number: None

PATIENT
  Age: 71 Year
  Sex: Female
  Weight: 66.22 kg

DRUGS (10)
  1. REPATHA [Suspect]
     Active Substance: EVOLOCUMAB
     Indication: LOW DENSITY LIPOPROTEIN INCREASED
     Dosage: ?          QUANTITY:1 INJECTION;OTHER FREQUENCY:2 MONTHS;OTHER ROUTE:INJECTION?
     Dates: start: 20180605, end: 20181007
  2. AMLODIPINES INHALER [Concomitant]
  3. KRILL OIL [Concomitant]
     Active Substance: DIETARY SUPPLEMENT\KRILL OIL
  4. CRESTOR [Concomitant]
     Active Substance: ROSUVASTATIN CALCIUM
  5. VITAMIN D3 [Concomitant]
     Active Substance: CHOLECALCIFEROL
  6. BENEFIBER [Concomitant]
     Active Substance: STARCH, WHEAT
  7. STATIN W/COQ10 [Concomitant]
  8. ASTELIN NOSE SPRAY [Concomitant]
  9. CLARITIN [Concomitant]
     Active Substance: LORATADINE
  10. COQ10 [Concomitant]
     Active Substance: UBIDECARENONE

REACTIONS (2)
  - Abdominal discomfort [None]
  - Injection site pain [None]

NARRATIVE: CASE EVENT DATE: 20180714
